FAERS Safety Report 14667520 (Version 1)
Quarter: 2018Q1

REPORT INFORMATION
  Report Type: Spontaneous
  Country: JP (occurrence: JP)
  Receive Date: 20180322
  Receipt Date: 20180322
  Transmission Date: 20180509
  Serious: Yes (Life-Threatening, Other)
  Sender: FDA-Public Use
  Company Number: JP-BAYER-2017-241824

PATIENT
  Age: 70 Year
  Sex: Male
  Weight: 52 kg

DRUGS (7)
  1. FUROSEMIDE. [Concomitant]
     Active Substance: FUROSEMIDE
     Indication: HYPERTENSION
     Dosage: DAILY DOSE 60 MG
     Route: 048
  2. SPIRONOLACTONE. [Concomitant]
     Active Substance: SPIRONOLACTONE
     Indication: HYPERTENSION
     Dosage: DAILY DOSE 25 MG
     Route: 048
  3. AMLODIPINE [Concomitant]
     Active Substance: AMLODIPINE BESYLATE
     Indication: HYPERTENSION
     Dosage: DAILY DOSE 5 MG
     Route: 048
  4. NEXAVAR [Suspect]
     Active Substance: SORAFENIB
     Indication: PAPILLARY THYROID CANCER
     Dosage: DAILY DOSE 600 MG
     Route: 048
     Dates: start: 20150826, end: 20170921
  5. THYRADIN S [Concomitant]
     Active Substance: LEVOTHYROXINE SODIUM
     Indication: HYPOTHYROIDISM
     Dosage: DAILY DOSE 200 ?G
     Route: 048
  6. NEXAVAR [Suspect]
     Active Substance: SORAFENIB
     Indication: PAPILLARY THYROID CANCER
     Dosage: DAILY DOSE 400 MG
     Route: 048
     Dates: start: 20141112, end: 20150825
  7. NEXAVAR [Suspect]
     Active Substance: SORAFENIB
     Indication: PAPILLARY THYROID CANCER
     Dosage: DAILY DOSE 800 MG
     Route: 048
     Dates: start: 20141006, end: 201411

REACTIONS (7)
  - Constipation [None]
  - Dysgeusia [None]
  - Cellulitis [Recovered/Resolved]
  - Palmar-plantar erythrodysaesthesia syndrome [None]
  - Cardiac failure congestive [Recovered/Resolved]
  - Alopecia [None]
  - Decreased appetite [None]

NARRATIVE: CASE EVENT DATE: 20170921
